FAERS Safety Report 7625999-1 (Version None)
Quarter: 2011Q3

REPORT INFORMATION
  Report Type: 
  Country: None (occurrence: None)
  Receive Date: 20110721
  Receipt Date: 20110711
  Transmission Date: 20111222
  Serious: Yes (Hospitalization)
  Sender: FDA-Public Use
  Company Number: SE-MEDIMMUNE-MEDI-0010646

PATIENT
  Sex: Male

DRUGS (5)
  1. SYNAGIS [Suspect]
     Dates: start: 20101119, end: 20101119
  2. SYNAGIS [Suspect]
  3. PANDEMRIX [Concomitant]
     Dates: start: 20100114, end: 20100114
  4. SYNAGIS [Suspect]
     Dates: start: 20100114, end: 20100114
  5. SYNAGIS [Suspect]
     Dates: start: 20091102, end: 20091102

REACTIONS (4)
  - PYREXIA [None]
  - RHINORRHOEA [None]
  - PNEUMONIA [None]
  - COUGH [None]
